FAERS Safety Report 7582168-1 (Version None)
Quarter: 2011Q2

REPORT INFORMATION
  Report Type: 
  Country: None (occurrence: None)
  Receive Date: 20110630
  Receipt Date: 20110620
  Transmission Date: 20111010
  Serious: No
  Sender: FDA-Public Use
  Company Number: US-BIOGENIDEC-2011BI022930

PATIENT
  Age: 53 Year
  Sex: Female

DRUGS (1)
  1. AVONEX [Suspect]
     Indication: MULTIPLE SCLEROSIS
     Route: 030
     Dates: start: 20110527

REACTIONS (5)
  - HYPOAESTHESIA [None]
  - MUSCLE SPASMS [None]
  - PYREXIA [None]
  - DECREASED APPETITE [None]
  - FATIGUE [None]
